FAERS Safety Report 4544674-3 (Version None)
Quarter: 2005Q1

REPORT INFORMATION
  Report Type: 
  Country: None (occurrence: None)
  Receive Date: 20050103
  Receipt Date: 20050103
  Transmission Date: 20050727
  Serious: Yes (Other)
  Sender: FDA-Public Use
  Company Number: None

PATIENT
  Sex: Male
  Weight: 77.1115 kg

DRUGS (2)
  1. ATIVAN [Suspect]
     Indication: ANXIETY
     Dosage: 5 MG AT NIGHT ORAL
     Route: 048
     Dates: start: 20041229, end: 20041229
  2. ATIVAN [Suspect]
     Indication: INSOMNIA
     Dosage: 5 MG AT NIGHT ORAL
     Route: 048
     Dates: start: 20041229, end: 20041229

REACTIONS (3)
  - DECREASED APPETITE [None]
  - MYASTHENIA GRAVIS [None]
  - UNRESPONSIVE TO PAIN STIMULI [None]
